FAERS Safety Report 10489380 (Version 1)
Quarter: 2014Q3

REPORT INFORMATION
  Report Type: Spontaneous
  Country: US (occurrence: None)
  Receive Date: 20140815
  Receipt Date: 20140815
  Transmission Date: 20150326
  Serious: Yes (Hospitalization, Other)
  Sender: FDA-Public Use
  Company Number: ADR-2013-02157

PATIENT
  Age: 29 Year
  Sex: Male

DRUGS (3)
  1. LIORESAL [Concomitant]
     Active Substance: BACLOFEN
  2. LIORESAL [Suspect]
     Active Substance: BACLOFEN
     Indication: MUSCLE SPASTICITY
  3. BOTOX [Suspect]
     Active Substance: ONABOTULINUMTOXINA

REACTIONS (9)
  - Incorrect dose administered [None]
  - Lethargy [None]
  - Hypertension [None]
  - Insomnia [None]
  - Accidental overdose [None]
  - Blood pressure fluctuation [None]
  - Nausea [None]
  - Somnolence [None]
  - Vomiting [None]
